FAERS Safety Report 17251107 (Version 6)
Quarter: 2020Q2

REPORT INFORMATION
  Report Type: Report from Study
  Country: US (occurrence: US)
  Receive Date: 20200109
  Receipt Date: 20200619
  Transmission Date: 20200713
  Serious: No
  Sender: FDA-Public Use
  Company Number: NVSC2020US002949

PATIENT
  Age: 66 Year
  Sex: Female

DRUGS (6)
  1. BEOVU [Suspect]
     Active Substance: BROLUCIZUMAB-DBLL
     Dosage: UNK UNK, UNKNOWN
     Route: 050
  2. BEOVU [Suspect]
     Active Substance: BROLUCIZUMAB-DBLL
     Dosage: UNK UNK, UNKNOWN
     Route: 047
     Dates: start: 20200315
  3. BEOVU [Suspect]
     Active Substance: BROLUCIZUMAB-DBLL
     Indication: NEOVASCULAR AGE-RELATED MACULAR DEGENERATION
     Dosage: UNK UNK, UNKNOWN
     Route: 047
     Dates: start: 20191212
  4. BETADINE [Concomitant]
     Active Substance: POVIDONE-IODINE
     Indication: PRODUCT USED FOR UNKNOWN INDICATION
     Route: 065
  5. BEOVU [Suspect]
     Active Substance: BROLUCIZUMAB-DBLL
     Dosage: UNK
     Route: 047
     Dates: start: 20200414
  6. BEOVU [Suspect]
     Active Substance: BROLUCIZUMAB-DBLL
     Dosage: UNK
     Route: 047
     Dates: start: 20200522

REACTIONS (18)
  - Injection site hypoaesthesia [Unknown]
  - Visual impairment [Unknown]
  - Photophobia [Unknown]
  - Eye irritation [Unknown]
  - Ocular discomfort [Unknown]
  - Pyrexia [Unknown]
  - Eyelid margin crusting [Recovering/Resolving]
  - Eye swelling [Recovering/Resolving]
  - Malaise [Unknown]
  - Aphonia [Unknown]
  - Nervousness [Recovering/Resolving]
  - Tension [Recovering/Resolving]
  - Foreign body sensation in eyes [Unknown]
  - Eye pain [Recovering/Resolving]
  - Oropharyngeal pain [Unknown]
  - Headache [Recovering/Resolving]
  - Vision blurred [Recovering/Resolving]
  - Cough [Unknown]

NARRATIVE: CASE EVENT DATE: 20191225
